FAERS Safety Report 21683200 (Version 1)
Quarter: 2022Q4

REPORT INFORMATION
  Report Type: Report from Study
  Country: CA (occurrence: CA)
  Receive Date: 20221205
  Receipt Date: 20221205
  Transmission Date: 20230113
  Serious: Yes (Other)
  Sender: FDA-Public Use
  Company Number: CA-JNJFOC-20221151077

PATIENT
  Age: 5 Decade
  Sex: Female
  Weight: 80 kg

DRUGS (3)
  1. STELARA [Suspect]
     Active Substance: USTEKINUMAB
     Indication: Crohn^s disease
     Route: 058
     Dates: start: 20210920
  2. STELARA [Suspect]
     Active Substance: USTEKINUMAB
     Dosage: RELOAD DOSE
     Route: 058
  3. STELARA [Suspect]
     Active Substance: USTEKINUMAB
     Route: 042

REACTIONS (7)
  - Drug level below therapeutic [Not Recovered/Not Resolved]
  - Tenderness [Not Recovered/Not Resolved]
  - Upper-airway cough syndrome [Not Recovered/Not Resolved]
  - Oropharyngeal pain [Not Recovered/Not Resolved]
  - Ear infection [Unknown]
  - Drug specific antibody present [Unknown]
  - Illness [Unknown]

NARRATIVE: CASE EVENT DATE: 20210101
